FAERS Safety Report 6951825-X (Version None)
Quarter: 2010Q3

REPORT INFORMATION
  Report Type: 
  Country: None (occurrence: None)
  Receive Date: 20100829
  Receipt Date: 20100409
  Transmission Date: 20110219
  Serious: No
  Sender: FDA-Public Use
  Company Number: US-ABBOTT-10P-163-0638811-00

PATIENT
  Sex: Female
  Weight: 68.1 kg

DRUGS (8)
  1. NIASPAN [Suspect]
     Indication: BLOOD CHOLESTEROL INCREASED
     Dates: start: 20100309
  2. ALIGN PRO BIOTIC [Concomitant]
     Indication: MEDICAL DIET
     Dosage: UNKNOWN
  3. CALCIUM PLUS D [Concomitant]
     Indication: MINERAL SUPPLEMENTATION
  4. FISH OIL [Concomitant]
     Indication: SUPPLEMENTATION THERAPY
  5. GLUCOSAMINE [Concomitant]
     Indication: SUPPLEMENTATION THERAPY
     Dosage: UNKNOWN
  6. ASPIRIN [Concomitant]
     Indication: PRODUCT USED FOR UNKNOWN INDICATION
     Dosage: UNKNOWN
  7. MUCINEX [Concomitant]
     Indication: PRODUCT USED FOR UNKNOWN INDICATION
     Dosage: UNKNOWN
  8. CLARITIN [Concomitant]
     Indication: PRODUCT USED FOR UNKNOWN INDICATION
     Dosage: UNKNOWN

REACTIONS (5)
  - FLUSHING [None]
  - HYPOAESTHESIA [None]
  - MYALGIA [None]
  - PARAESTHESIA [None]
  - ROAD TRAFFIC ACCIDENT [None]
